FAERS Safety Report 6774564-7 (Version None)
Quarter: 2010Q2

REPORT INFORMATION
  Report Type: 
  Country: None (occurrence: None)
  Receive Date: 20100617
  Receipt Date: 20100609
  Transmission Date: 20101027
  Serious: Yes (Other)
  Sender: FDA-Public Use
  Company Number: PHHY2010CA31708

PATIENT
  Age: 34 Year
  Sex: Male

DRUGS (5)
  1. CARBAMAZEPINE [Suspect]
     Indication: COMPLEX PARTIAL SEIZURES
     Dosage: UNK
  2. ACETAMINOPHEN [Suspect]
     Indication: MUSCULOSKELETAL PAIN
     Dosage: 2.5 GRAMS A DAY
  3. CLOBAZAM [Concomitant]
     Dosage: 10 MG DAILY
  4. METHOCARBAMOL [Concomitant]
  5. MESALAZINE [Concomitant]
     Indication: CROHN'S DISEASE
     Dosage: 4 G DAILY

REACTIONS (18)
  - ABDOMINAL PAIN [None]
  - ABDOMINAL TENDERNESS [None]
  - ACUTE HEPATIC FAILURE [None]
  - ALANINE AMINOTRANSFERASE INCREASED [None]
  - ANURIA [None]
  - ASPARTATE AMINOTRANSFERASE INCREASED [None]
  - BLOOD CREATININE INCREASED [None]
  - BLOOD UREA INCREASED [None]
  - CEREBELLAR SYNDROME [None]
  - DIPLOPIA [None]
  - GAIT DISTURBANCE [None]
  - GASTROINTESTINAL SOUNDS ABNORMAL [None]
  - INTERNATIONAL NORMALISED RATIO INCREASED [None]
  - NEPHRITIS [None]
  - NYSTAGMUS [None]
  - PROTHROMBIN TIME PROLONGED [None]
  - RENAL FAILURE ACUTE [None]
  - TREMOR [None]
